FAERS Safety Report 19498999 (Version 1)
Quarter: 2021Q3

REPORT INFORMATION
  Report Type: Spontaneous
  Country: US (occurrence: US)
  Receive Date: 20210707
  Receipt Date: 20210707
  Transmission Date: 20211014
  Serious: No
  Sender: FDA-Public Use
  Company Number: US-TARO-2020TAR01419

PATIENT
  Age: 3 Year
  Sex: Female
  Weight: 13.15 kg

DRUGS (1)
  1. FLUOCINOLONE ACETONIDE TOPICAL BODY OIL 0.01% [Suspect]
     Active Substance: FLUOCINOLONE ACETONIDE
     Indication: ECZEMA
     Dosage: BID, APPLY TOPICAL TO AFFECTED AREAS; APPLIED ONCE
     Route: 061
     Dates: start: 20200822

REACTIONS (2)
  - Skin burning sensation [Not Recovered/Not Resolved]
  - Product odour abnormal [Unknown]

NARRATIVE: CASE EVENT DATE: 20200822
